FAERS Safety Report 20934405 (Version 2)
Quarter: 2022Q2

REPORT INFORMATION
  Report Type: Spontaneous
  Country: DE (occurrence: DE)
  Receive Date: 20220608
  Receipt Date: 20220615
  Transmission Date: 20220721
  Serious: Yes (Congenital Anomaly, Other)
  Sender: FDA-Public Use
  Company Number: DE-ANIPHARMA-2022-DE-000066

PATIENT
  Age: 35 Year
  Sex: Female
  Weight: 51 kg

DRUGS (5)
  1. ATACAND [Suspect]
     Active Substance: CANDESARTAN CILEXETIL
     Indication: Hypertension
     Dosage: 16 MG DAILY
     Route: 048
     Dates: start: 20210207, end: 20210509
  2. BISOPROLOL [Suspect]
     Active Substance: BISOPROLOL
     Dosage: 7.5 [MG/D]
     Route: 048
     Dates: start: 20210521, end: 20210724
  3. AMLODIPINE [Suspect]
     Active Substance: AMLODIPINE BESYLATE
     Dosage: 5 MG DAILY
     Route: 048
     Dates: start: 20210207, end: 20210509
  4. METHYLDOPA [Suspect]
     Active Substance: METHYLDOPA
     Dosage: 2000 MG DAILY
     Route: 048
     Dates: start: 20210510, end: 20210724
  5. METHYLDOPA [Suspect]
     Active Substance: METHYLDOPA
     Dosage: 200 MG/D
     Route: 048
     Dates: start: 20210521, end: 20210721

REACTIONS (6)
  - Ultrasound uterus abnormal [Recovered/Resolved]
  - Foetal growth restriction [Recovered/Resolved]
  - Placental insufficiency [Recovered/Resolved]
  - Maternal exposure during pregnancy [Unknown]
  - Contraindicated product administered [Unknown]
  - Overdose [Unknown]
